FAERS Safety Report 16862587 (Version 1)
Quarter: 2019Q3

REPORT INFORMATION
  Report Type: Spontaneous
  Country: CN (occurrence: CN)
  Receive Date: 20190927
  Receipt Date: 20190927
  Transmission Date: 20191005
  Serious: Yes (Other)
  Sender: FDA-Public Use
  Company Number: CN-PFIZER INC-2019410798

PATIENT
  Age: 30 Year
  Sex: Female
  Weight: 66 kg

DRUGS (4)
  1. FRAGMIN [Suspect]
     Active Substance: DALTEPARIN SODIUM
     Indication: ABORTION THREATENED
     Dosage: 5000 IU, TWICE A DAY(Q12H)
     Route: 058
     Dates: start: 20190830, end: 20190912
  2. CHORIONIC GONADOTROPHIN [Suspect]
     Active Substance: CHORIOGONADOTROPIN ALFA
     Indication: PROPHYLAXIS OF ABORTION
     Dosage: 2000 UNITS, ONCE A DAY
     Route: 030
     Dates: start: 20190830, end: 20190912
  3. PHLOROGLUCINOL [Suspect]
     Active Substance: PHLOROGLUCINOL
     Indication: UTERINE CONTRACTIONS DURING PREGNANCY
     Dosage: 200 MG, ONCE A DAY
     Route: 041
     Dates: start: 20190830, end: 20190902
  4. PROGESTERONE. [Suspect]
     Active Substance: PROGESTERONE
     Indication: PROPHYLAXIS OF ABORTION
     Dosage: 20 MG, ONCE A DAY (QD)
     Route: 030
     Dates: start: 20190830, end: 20190912

REACTIONS (5)
  - Alanine aminotransferase increased [Recovering/Resolving]
  - Aspartate aminotransferase increased [Recovering/Resolving]
  - Product use in unapproved indication [Unknown]
  - Off label use [Unknown]
  - Maternal exposure during pregnancy [Unknown]

NARRATIVE: CASE EVENT DATE: 20190830
